FAERS Safety Report 11966555 (Version 1)
Quarter: 2016Q1

REPORT INFORMATION
  Report Type: Spontaneous
  Country: US (occurrence: US)
  Receive Date: 20160127
  Receipt Date: 20160127
  Transmission Date: 20160526
  Serious: Yes (Hospitalization)
  Sender: FDA-Public Use
  Company Number: US-ASTRAZENECA-2016SE06536

PATIENT
  Age: 752 Month
  Sex: Female
  Weight: 68 kg

DRUGS (13)
  1. METOPROLOL SUCCINATE. [Suspect]
     Active Substance: METOPROLOL SUCCINATE
     Indication: HEART RATE IRREGULAR
     Route: 048
     Dates: start: 20160117
  2. GLUCOSAMINE [Concomitant]
     Active Substance: GLUCOSAMINE
     Indication: BONE DISORDER
     Route: 048
     Dates: start: 1984
  3. CENTRUM SILVER FOR WOMEN OVER 50 [Concomitant]
     Route: 048
     Dates: start: 1984
  4. METOPROLOL TARTRATE. [Concomitant]
     Active Substance: METOPROLOL TARTRATE
     Indication: HEART RATE IRREGULAR
     Route: 048
     Dates: start: 201509, end: 20160116
  5. XALATAN [Concomitant]
     Active Substance: LATANOPROST
     Indication: GLAUCOMA
     Route: 047
     Dates: start: 2008
  6. GLUCOSAMINE [Concomitant]
     Active Substance: GLUCOSAMINE
     Indication: ARTHROPATHY
     Route: 048
     Dates: start: 1984
  7. METOPROLOL TARTRATE. [Concomitant]
     Active Substance: METOPROLOL TARTRATE
     Indication: HYPERTROPHIC CARDIOMYOPATHY
     Route: 048
     Dates: start: 201509, end: 20160116
  8. YEAST [Concomitant]
     Active Substance: YEAST
     Indication: BLOOD CHOLESTEROL ABNORMAL
     Route: 048
     Dates: start: 1984
  9. UBIQUINOL [Concomitant]
     Active Substance: UBIQUINOL
     Indication: DRUG THERAPY
     Route: 048
     Dates: start: 201509
  10. FISH OIL [Concomitant]
     Active Substance: FISH OIL
     Indication: CARDIOVASCULAR DISORDER
     Route: 048
     Dates: start: 1984
  11. METOPROLOL SUCCINATE. [Suspect]
     Active Substance: METOPROLOL SUCCINATE
     Indication: HYPERTROPHIC CARDIOMYOPATHY
     Route: 048
     Dates: start: 20160117
  12. METOPROLOL SUCCINATE. [Suspect]
     Active Substance: METOPROLOL SUCCINATE
     Indication: HYPERTROPHIC CARDIOMYOPATHY
     Route: 048
     Dates: start: 20160117
  13. METOPROLOL TARTRATE. [Concomitant]
     Active Substance: METOPROLOL TARTRATE
     Indication: HYPERTROPHIC CARDIOMYOPATHY
     Route: 048
     Dates: start: 201509, end: 20160116

REACTIONS (5)
  - Peripheral vascular disorder [Recovering/Resolving]
  - Blood pressure fluctuation [Not Recovered/Not Resolved]
  - Ventricular tachycardia [Unknown]
  - Heart rate abnormal [Not Recovered/Not Resolved]
  - Withdrawal hypertension [Not Recovered/Not Resolved]

NARRATIVE: CASE EVENT DATE: 201601
